FAERS Safety Report 5425761-4 (Version None)
Quarter: 2007Q3

REPORT INFORMATION
  Report Type: 
  Country: None (occurrence: None)
  Receive Date: 20070731
  Receipt Date: 20070514
  Transmission Date: 20080115
  Serious: No
  Sender: FDA-Public Use
  Company Number: 2007PV031613

PATIENT
  Age: 69 Year
  Sex: Male
  Weight: 149.7 kg

DRUGS (8)
  1. EXENATIDE(EXENATIDE) PEN, DISPOSABLE [Suspect]
     Indication: TYPE 2 DIABETES MELLITUS
     Dosage: 5 UG, 2/D, SUBCUTANEOUS; 5 UG, DAILY (1/D), SUBCUTANEOUS
     Route: 058
     Dates: start: 20060801
  2. EXENATIDE(EXENATIDE) PEN, DISPOSABLE [Suspect]
     Indication: TYPE 2 DIABETES MELLITUS
     Dosage: 5 UG, 2/D, SUBCUTANEOUS; 5 UG, DAILY (1/D), SUBCUTANEOUS
     Route: 058
     Dates: start: 20061101
  3. EXENATIDE(EXENATIDE) PEN, DISPOSABLE [Suspect]
  4. HUMULIN 70/30 [Concomitant]
  5. METFORMIN HCL [Concomitant]
  6. ACTOS [Concomitant]
  7. ASPIRIN [Concomitant]
  8. DIOVAN [Concomitant]

REACTIONS (2)
  - BLOOD GLUCOSE INCREASED [None]
  - GLYCOSYLATED HAEMOGLOBIN INCREASED [None]
